FAERS Safety Report 7592898-3 (Version None)
Quarter: 2011Q3

REPORT INFORMATION
  Report Type: 
  Country: None (occurrence: None)
  Receive Date: 20110706
  Receipt Date: 20110630
  Transmission Date: 20111222
  Serious: Yes (Other)
  Sender: FDA-Public Use
  Company Number: HR-PFIZER INC-2011147947

PATIENT

DRUGS (1)
  1. AZITHROMYCIN [Suspect]

REACTIONS (1)
  - DERMATITIS BULLOUS [None]
